FAERS Safety Report 9655951 (Version 2)
Quarter: 2013Q4

REPORT INFORMATION
  Report Type: Spontaneous
  Country: FR (occurrence: FR)
  Receive Date: 20131030
  Receipt Date: 20131128
  Transmission Date: 20140711
  Serious: Yes (Life-Threatening, Hospitalization)
  Sender: FDA-Public Use
  Company Number: FR-ASTRAZENECA-2013SE78888

PATIENT
  Age: 17064 Day
  Sex: Female

DRUGS (8)
  1. XEROQUEL [Suspect]
     Indication: PSYCHOTIC DISORDER
     Route: 048
     Dates: start: 20131007, end: 20131016
  2. XEROQUEL [Interacting]
     Indication: PSYCHOTIC DISORDER
     Route: 048
     Dates: start: 20131022
  3. NORVIR [Interacting]
     Indication: HIV INFECTION
     Route: 065
     Dates: end: 20131016
  4. TRUVADA [Suspect]
     Indication: HIV INFECTION
     Route: 065
     Dates: end: 20131016
  5. REYATAZ [Suspect]
     Indication: HIV INFECTION
     Route: 065
     Dates: end: 20131016
  6. ROWASA [Suspect]
     Indication: COLITIS ULCERATIVE
     Route: 065
  7. PAROXETINE [Concomitant]
  8. DEPAKOTE [Concomitant]
     Indication: PSYCHOTIC DISORDER
     Route: 048

REACTIONS (11)
  - Labelled drug-drug interaction medication error [Unknown]
  - Bone marrow failure [Unknown]
  - Confusional state [Recovered/Resolved]
  - Renal failure acute [Not Recovered/Not Resolved]
  - Macrocytosis [Recovering/Resolving]
  - Thrombocytopenia [Recovering/Resolving]
  - Vitamin B12 decreased [Unknown]
  - Blood folate decreased [Unknown]
  - Disease recurrence [Unknown]
  - Therapy cessation [Unknown]
  - Off label use [Recovered/Resolved]
